FAERS Safety Report 22619740 (Version 1)
Quarter: 2023Q2

REPORT INFORMATION
  Report Type: Report from Study
  Country: HK (occurrence: HK)
  Receive Date: 20230620
  Receipt Date: 20230620
  Transmission Date: 20230721
  Serious: Yes (Hospitalization)
  Sender: FDA-Public Use
  Company Number: HK-MYLANLABS-2023M1064673

PATIENT
  Age: 54 Year
  Sex: Female
  Weight: 34.5 kg

DRUGS (1)
  1. METFORMIN [Suspect]
     Active Substance: METFORMIN HYDROCHLORIDE
     Indication: Diabetic ketoacidosis
     Dosage: 250 MILLIGRAM, BID
     Route: 065

REACTIONS (2)
  - Neurological symptom [Recovered/Resolved]
  - Off label use [Unknown]
